FAERS Safety Report 13297899 (Version 1)
Quarter: 2017Q1

REPORT INFORMATION
  Report Type: Spontaneous
  Country: KR (occurrence: KR)
  Receive Date: 20170306
  Receipt Date: 20170306
  Transmission Date: 20170428
  Serious: Yes (Other)
  Sender: FDA-Public Use
  Company Number: KR-CIPLA LTD.-2017KR02427

PATIENT

DRUGS (8)
  1. DOCETAXEL. [Suspect]
     Active Substance: DOCETAXEL
     Indication: UTERINE LEIOMYOSARCOMA
     Dosage: UNK, PREVIOUS CHEMOTHERAPY
     Route: 065
  2. MESNA. [Suspect]
     Active Substance: MESNA
     Indication: DRUG TOXICITY PROPHYLAXIS
     Dosage: 1200 MG/M2, ON DAYS 1-2
     Route: 065
  3. IFOSFAMIDE. [Suspect]
     Active Substance: IFOSFAMIDE
     Indication: UTERINE LEIOMYOSARCOMA
     Dosage: UNK, PREVIOUS CHEMOTHERAPY
     Route: 065
  4. ADRIAMYCIN [Suspect]
     Active Substance: DOXORUBICIN HYDROCHLORIDE
     Indication: UTERINE LEIOMYOSARCOMA
     Dosage: UNK, PREVIOUS CHEMOTHERAPY
     Route: 065
  5. ETOPOSIDE. [Suspect]
     Active Substance: ETOPOSIDE
     Indication: UTERINE LEIOMYOSARCOMA
     Dosage: 100 MG/M2, ON DAYS 1-5, CYCLES REPEATED EVERY 28 DAYS
  6. GEMCITABINE [Suspect]
     Active Substance: GEMCITABINE\GEMCITABINE HYDROCHLORIDE
     Indication: UTERINE LEIOMYOSARCOMA
     Dosage: UNK, PREVIOUS CHEMOTHERAPY
     Route: 065
  7. IFOSFAMIDE. [Suspect]
     Active Substance: IFOSFAMIDE
     Dosage: 2000 MG/M2, ON DAYS 1-2, REPEATED EVERY 28 DAYS
  8. CISPLATIN. [Suspect]
     Active Substance: CISPLATIN
     Indication: UTERINE LEIOMYOSARCOMA
     Dosage: 20 MG/M2, ON DAYS1-5, CYCLES REPEATED EVERY 28 DAYS

REACTIONS (2)
  - Haematotoxicity [Unknown]
  - Disease progression [Unknown]
